FAERS Safety Report 9743487 (Version 3)
Quarter: 2013Q4

REPORT INFORMATION
  Report Type: Spontaneous
  Country: US (occurrence: US)
  Receive Date: 20131210
  Receipt Date: 20131212
  Transmission Date: 20140711
  Serious: No
  Sender: FDA-Public Use
  Company Number: US-TEVA-383068USA

PATIENT
  Sex: Female
  Weight: 77.18 kg

DRUGS (1)
  1. PARAGARD 380A [Suspect]
     Indication: CONTRACEPTION
     Route: 015
     Dates: start: 20110419

REACTIONS (4)
  - Live birth [Unknown]
  - Drug ineffective [Unknown]
  - Device expulsion [Recovered/Resolved]
  - Amenorrhoea [Recovered/Resolved]
